FAERS Safety Report 5738278-4 (Version None)
Quarter: 2008Q2

REPORT INFORMATION
  Report Type: 
  Country: None (occurrence: None)
  Receive Date: 20080514
  Receipt Date: 20080508
  Transmission Date: 20081010
  Serious: Yes (Hospitalization)
  Sender: FDA-Public Use
  Company Number: US-GENENTECH-259159

PATIENT
  Sex: Male
  Weight: 82 kg

DRUGS (6)
  1. BLINDED BEVACIZUMAB [Suspect]
     Indication: METASTATIC MALIGNANT MELANOMA
     Dosage: 1234 MG, Q3W
     Route: 042
     Dates: start: 20080402, end: 20080422
  2. CARBOPLATIN [Suspect]
     Indication: METASTATIC MALIGNANT MELANOMA
     Dosage: 1234 MG, Q3W
     Route: 042
     Dates: start: 20080402, end: 20080422
  3. PACLITAXEL [Suspect]
     Indication: METASTATIC MALIGNANT MELANOMA
     Dosage: 1234 MG, Q3W
     Route: 042
     Dates: start: 20080402, end: 20080422
  4. BLINDED PLACEBO [Suspect]
     Indication: METASTATIC MALIGNANT MELANOMA
     Dosage: 1234 MG, Q3W
     Route: 042
     Dates: start: 20080402, end: 20080422
  5. CARBOPLATIN [Suspect]
     Indication: METASTATIC MALIGNANT MELANOMA
  6. PACLITAXEL [Suspect]
     Indication: METASTATIC MALIGNANT MELANOMA

REACTIONS (1)
  - FEBRILE NEUTROPENIA [None]
